FAERS Safety Report 16374585 (Version 1)
Quarter: 2019Q2

REPORT INFORMATION
  Report Type: Spontaneous
  Country: US (occurrence: US)
  Receive Date: 20190530
  Receipt Date: 20190530
  Transmission Date: 20190711
  Serious: Yes (Life-Threatening, Hospitalization, Disabling, Other)
  Sender: FDA-Public Use
  Company Number: US-ACELLA PHARMACEUTICALS, LLC-2067618

PATIENT
  Age: 24 Month
  Sex: Female

DRUGS (9)
  1. PHENOBARBITAL. [Suspect]
     Active Substance: PHENOBARBITAL
  2. CEFOTAXIME [Suspect]
     Active Substance: CEFOTAXIME SODIUM
  3. VANCOMYCIN HYDROCHLORIDE. [Suspect]
     Active Substance: VANCOMYCIN HYDROCHLORIDE
  4. CEFTRIAXONE. [Suspect]
     Active Substance: CEFTRIAXONE
  5. LACOSAMIDE. [Suspect]
     Active Substance: LACOSAMIDE
  6. PHENYTOIN SODIUM. [Suspect]
     Active Substance: PHENYTOIN SODIUM
     Indication: FEBRILE INFECTION-RELATED EPILEPSY SYNDROME
  7. AMPICILLIN SODIUM. [Suspect]
     Active Substance: AMPICILLIN SODIUM
  8. OMEPRAZOLE. [Suspect]
     Active Substance: OMEPRAZOLE
  9. ACETAMINOPHEN. [Suspect]
     Active Substance: ACETAMINOPHEN

REACTIONS (2)
  - Febrile infection-related epilepsy syndrome [Unknown]
  - Drug reaction with eosinophilia and systemic symptoms [Unknown]
